FAERS Safety Report 8938810 (Version 2)
Quarter: 2013Q1

REPORT INFORMATION
  Report Type: Spontaneous
  Country: US (occurrence: US)
  Receive Date: 20121203
  Receipt Date: 20130102
  Transmission Date: 20140127
  Serious: Yes (Other)
  Sender: FDA-Public Use
  Company Number: US-BAYER-2012-125347

PATIENT
  Age: 19 Year
  Sex: Female
  Weight: 55.33 kg

DRUGS (2)
  1. MIRENA [Suspect]
     Indication: CONTRACEPTION
     Dosage: 20 MCG/24HR, CONT
     Route: 015
     Dates: start: 20120831, end: 20121119
  2. MIRENA [Suspect]
     Indication: MENORRHAGIA

REACTIONS (4)
  - Vaginal haemorrhage [Recovered/Resolved]
  - Vaginitis bacterial [None]
  - Abdominal pain lower [Recovered/Resolved]
  - Device expulsion [Recovered/Resolved]
